FAERS Safety Report 9159579 (Version 1)
Quarter: 2013Q1

REPORT INFORMATION
  Report Type: Spontaneous
  Country: US (occurrence: None)
  Receive Date: 20130312
  Receipt Date: 20130312
  Transmission Date: 20140127
  Serious: No
  Sender: FDA-Public Use
  Company Number: None

PATIENT
  Age: 9 Year
  Sex: Female
  Weight: 37.2 kg

DRUGS (1)
  1. LUPRON DEPOT [Suspect]
     Dosage: INJECT 15 MG INTRAMUSCULARLY EVERY 20 DAYS
     Route: 030
     Dates: start: 20110822

REACTIONS (2)
  - Pyrexia [None]
  - Rash erythematous [None]
